FAERS Safety Report 23084975 (Version 1)
Quarter: 2023Q4

REPORT INFORMATION
  Report Type: Spontaneous
  Country: US (occurrence: US)
  Receive Date: 20231019
  Receipt Date: 20231019
  Transmission Date: 20240110
  Serious: No
  Sender: FDA-Public Use
  Company Number: US-SANDOZ-SDZ2023US043952

PATIENT
  Sex: Male
  Weight: 112.73 kg

DRUGS (1)
  1. MOMETASONE [Suspect]
     Active Substance: MOMETASONE
     Indication: Psoriasis
     Route: 065

REACTIONS (1)
  - Therapeutic product effect incomplete [Unknown]
